FAERS Safety Report 5178061-4 (Version None)
Quarter: 2006Q4

REPORT INFORMATION
  Report Type: 
  Country: None (occurrence: None)
  Receive Date: 20061208
  Receipt Date: 20060801
  Transmission Date: 20070319
  Serious: Yes (Other)
  Sender: FDA-Public Use
  Company Number: 2006027611

PATIENT
  Age: 62 Year
  Sex: Female

DRUGS (1)
  1. BEXTRA [Suspect]
     Dosage: 10 MG (10 MG, 1 IN 1 D)
     Dates: start: 20021101

REACTIONS (2)
  - ORAL LICHEN PLANUS [None]
  - PEMPHIGOID [None]
